FAERS Safety Report 6422149-4 (Version None)
Quarter: 2009Q4

REPORT INFORMATION
  Report Type: 
  Country: None (occurrence: None)
  Receive Date: 20091029
  Receipt Date: 20091029
  Transmission Date: 20100525
  Serious: Yes (Hospitalization)
  Sender: FDA-Public Use
  Company Number: None

PATIENT
  Sex: Female
  Weight: 167 kg

DRUGS (2)
  1. AVASTIN [Suspect]
     Indication: ANGIOSARCOMA
     Dosage: 15 MG/KG/DAY EVERY 3 WEE
     Dates: start: 20090910
  2. AVASTIN [Suspect]
     Indication: ANGIOSARCOMA
     Dosage: 15 MG/KG/DAY EVERY 3 WEE
     Dates: start: 20091002

REACTIONS (2)
  - ARTHRALGIA [None]
  - FRACTURE [None]
